FAERS Safety Report 7916423-X (Version None)
Quarter: 2011Q4

REPORT INFORMATION
  Report Type: 
  Country: None (occurrence: None)
  Receive Date: 20111116
  Receipt Date: 20111111
  Transmission Date: 20120403
  Serious: Yes (Other)
  Sender: FDA-Public Use
  Company Number: US-BIOGENIDEC-2011BI031252

PATIENT
  Age: 55 Year
  Sex: Male

DRUGS (3)
  1. DEPAKOTE [Concomitant]
     Dates: start: 20040101
  2. PHENOBARBITAL TAB [Concomitant]
     Dates: start: 20040101
  3. AVONEX [Suspect]
     Indication: MULTIPLE SCLEROSIS
     Route: 030
     Dates: start: 20101112

REACTIONS (7)
  - PHYSIOTHERAPY [None]
  - CONVULSION [None]
  - MEMORY IMPAIRMENT [None]
  - BLOOD PRESSURE INCREASED [None]
  - ASTHENIA [None]
  - MOBILITY DECREASED [None]
  - VISUAL IMPAIRMENT [None]
